FAERS Safety Report 15902389 (Version 1)
Quarter: 2019Q1

REPORT INFORMATION
  Report Type: Spontaneous
  Country: FR (occurrence: FR)
  Receive Date: 20190201
  Receipt Date: 20190201
  Transmission Date: 20190417
  Serious: Yes (Hospitalization)
  Sender: FDA-Public Use
  Company Number: FR-TEVA-2019-FR-1006422

PATIENT
  Age: 63 Year
  Sex: Male

DRUGS (8)
  1. PARKINANE LP 2 MG, G?LULE ? LIB?RATION PROLONG?E [Concomitant]
  2. LOXAPAC 50 MG, COMPRIM? PELLICUL? [Concomitant]
     Active Substance: LOXAPINE SUCCINATE
  3. ZOPICLONE [Concomitant]
     Active Substance: ZOPICLONE
  4. RISPERIDONE. [Concomitant]
     Active Substance: RISPERIDONE
  5. RAMIPRIL. [Concomitant]
     Active Substance: RAMIPRIL
  6. PAROXETINE (CHLORHYDRATE DE) HEMIHYDRATE [Suspect]
     Active Substance: PAROXETINE HYDROCHLORIDE
     Indication: PRODUCT USED FOR UNKNOWN INDICATION
     Route: 048
     Dates: start: 2015
  7. CLOPIDOGREL (CHLORHYDRATE DE) [Suspect]
     Active Substance: CLOPIDOGREL HYDROCHLORIDE
     Indication: VASCULAR DEVICE USER
     Route: 048
     Dates: start: 2009
  8. TRANXENE [Concomitant]
     Active Substance: CLORAZEPATE DIPOTASSIUM

REACTIONS (2)
  - Contusion [Recovering/Resolving]
  - Subdural haematoma [Recovering/Resolving]

NARRATIVE: CASE EVENT DATE: 20180820
